FAERS Safety Report 24298842 (Version 1)
Quarter: 2024Q3

REPORT INFORMATION
  Report Type: Spontaneous
  Country: DE (occurrence: DE)
  Receive Date: 20240909
  Receipt Date: 20240909
  Transmission Date: 20241016
  Serious: Yes (Hospitalization)
  Sender: FRESENIUS KABI
  Company Number: DE-ROCHE-2542126

PATIENT
  Age: 79 Year
  Sex: Male
  Weight: 64 kg

DRUGS (9)
  1. CARBOPLATIN [Suspect]
     Active Substance: CARBOPLATIN
     Indication: Squamous cell carcinoma of lung
     Dosage: MOST RECENT DOSE RECEIVED ON 04/NOV/2019, 500 MG?FORM OF ADMIN: INFUSION?ROUTE OF ADMIN: INTRAVENOUS
     Dates: start: 20190731
  2. PLACEBO [Suspect]
     Active Substance: PLACEBO
     Indication: Squamous cell carcinoma of lung
     Dosage: MOST RECENT DOSE RECEIVED ON 04/NOV/2019?DOSAGE FORM: INFUSION?ROA: INTRAVENOUS
     Dates: start: 20190731
  3. METOPROLOL [Concomitant]
     Active Substance: METOPROLOL
     Indication: Sinus tachycardia
     Dates: start: 20191216
  4. PACLITAXEL [Concomitant]
     Active Substance: PACLITAXEL
     Indication: Squamous cell carcinoma of lung
     Dosage: MOST RECENT DOSE RECEIVED ON 18/NOV/2019, 87 MG?DOSAGE FORM: INFUSION?ROA: INTRAVENOUS
     Dates: start: 20190731
  5. TORSEMIDE [Concomitant]
     Active Substance: TORSEMIDE
     Indication: Cardiac failure
     Dates: start: 20200110
  6. APIXABAN [Concomitant]
     Active Substance: APIXABAN
     Indication: Atrial flutter
     Dates: start: 20200109, end: 20201103
  7. RAMIPRIL [Concomitant]
     Active Substance: RAMIPRIL
     Indication: Cardiac failure
     Dates: start: 20200110
  8. LEVOTHYROXINE [Concomitant]
     Active Substance: LEVOTHYROXINE\LEVOTHYROXINE SODIUM
     Indication: Product used for unknown indication
  9. ELIQUIS [Concomitant]
     Active Substance: APIXABAN
     Indication: Atrial flutter
     Dates: start: 20200110

REACTIONS (1)
  - Sinus node dysfunction [Recovered/Resolved]

NARRATIVE: CASE EVENT DATE: 20200123
